FAERS Safety Report 4682258-7 (Version None)
Quarter: 2005Q2

REPORT INFORMATION
  Report Type: 
  Country: None (occurrence: None)
  Receive Date: 20050531
  Receipt Date: 20050421
  Transmission Date: 20051028
  Serious: No
  Sender: FDA-Public Use
  Company Number: 2005BI008419

PATIENT
  Age: 50 Year
  Sex: Female
  Weight: 52.1637 kg

DRUGS (1)
  1. AMEVIVE [Suspect]
     Indication: PSORIASIS
     Dosage: IM
     Route: 030
     Dates: start: 20050317

REACTIONS (4)
  - ANXIETY [None]
  - INFLUENZA LIKE ILLNESS [None]
  - MYALGIA [None]
  - THROAT IRRITATION [None]
